FAERS Safety Report 16596528 (Version 1)
Quarter: 2019Q3

REPORT INFORMATION
  Report Type: Spontaneous
  Country: FR (occurrence: FR)
  Receive Date: 20190719
  Receipt Date: 20190719
  Transmission Date: 20191004
  Serious: Yes (Hospitalization)
  Sender: FDA-Public Use
  Company Number: FR-GLAXOSMITHKLINE-FR2019129337

PATIENT
  Age: 55 Year
  Sex: Female

DRUGS (2)
  1. NEURONTIN [Suspect]
     Active Substance: GABAPENTIN
     Indication: EPILEPSY
     Dosage: 200 MG, SINGLE
     Route: 048
     Dates: start: 20190707, end: 20190707
  2. LAMICTAL [Suspect]
     Active Substance: LAMOTRIGINE
     Indication: EPILEPSY
     Dosage: 800 MG, SINGLE
     Route: 048
     Dates: start: 20190707, end: 20190707

REACTIONS (4)
  - Incorrect dose administered [Recovered/Resolved]
  - Vomiting [Recovering/Resolving]
  - Accidental overdose [Recovered/Resolved]
  - Headache [Recovering/Resolving]

NARRATIVE: CASE EVENT DATE: 20190707
